FAERS Safety Report 8022838-4 (Version None)
Quarter: 2012Q1

REPORT INFORMATION
  Report Type: 
  Country: None (occurrence: None)
  Receive Date: 20120104
  Receipt Date: 20111230
  Transmission Date: 20120608
  Serious: Yes (Death)
  Sender: FDA-Public Use
  Company Number: GB-ROCHE-1008750

PATIENT
  Sex: Female

DRUGS (3)
  1. LUCENTIS [Suspect]
     Indication: MACULAR DEGENERATION
     Route: 050
     Dates: start: 20070701, end: 20080101
  2. BECLOMETHASONE DIPROPIONATE [Concomitant]
     Indication: ASTHMA
  3. ALBUTEROL SULFATE AUTOHALER [Concomitant]
     Indication: ASTHMA

REACTIONS (1)
  - AORTIC ANEURYSM RUPTURE [None]
